FAERS Safety Report 14026060 (Version 4)
Quarter: 2018Q1

REPORT INFORMATION
  Report Type: Report from Study
  Country: US (occurrence: US)
  Receive Date: 20170929
  Receipt Date: 20180103
  Transmission Date: 20180508
  Serious: Yes (Other)
  Sender: FDA-Public Use
  Company Number: US-PFIZER INC-2017391051

PATIENT
  Age: 52 Year
  Sex: Female

DRUGS (1)
  1. IBRANCE [Suspect]
     Active Substance: PALBOCICLIB
     Indication: BREAST CANCER
     Dosage: 125 MG, 1X/DAY
     Route: 048
     Dates: start: 20170901, end: 201709

REACTIONS (26)
  - Chills [Unknown]
  - Skin disorder [Unknown]
  - Erythema [Unknown]
  - Skin infection [Unknown]
  - Decreased appetite [Unknown]
  - Blood pressure increased [Unknown]
  - Nausea [Unknown]
  - Skin lesion [Unknown]
  - Pyrexia [Unknown]
  - Fatigue [Unknown]
  - White blood cell count decreased [Unknown]
  - Insomnia [Unknown]
  - Weight decreased [Unknown]
  - Alopecia [Unknown]
  - Pruritus [Unknown]
  - Laboratory test abnormal [Unknown]
  - Hangnail [Unknown]
  - Pancytopenia [Unknown]
  - Haemoglobin decreased [Unknown]
  - Rash pruritic [Not Recovered/Not Resolved]
  - Radiation injury [Unknown]
  - Neoplasm progression [Unknown]
  - Wound secretion [Unknown]
  - Peripheral swelling [Unknown]
  - Arthralgia [Unknown]
  - Pain [Not Recovered/Not Resolved]

NARRATIVE: CASE EVENT DATE: 2017
